FAERS Safety Report 13111084 (Version 2)
Quarter: 2017Q2

REPORT INFORMATION
  Report Type: Spontaneous
  Country: US (occurrence: US)
  Receive Date: 20170112
  Receipt Date: 20170403
  Transmission Date: 20170830
  Serious: Yes (Other)
  Sender: FDA-Public Use
  Company Number: US-ELI_LILLY_AND_COMPANY-US201701003430

PATIENT
  Sex: Female

DRUGS (2)
  1. HUMULIN R [Suspect]
     Active Substance: INSULIN HUMAN
     Indication: TYPE 2 DIABETES MELLITUS
     Dosage: 42 U, EACH MORNING
     Route: 065
  2. HUMULIN R [Suspect]
     Active Substance: INSULIN HUMAN
     Dosage: 37 U, EACH EVENING
     Route: 065

REACTIONS (4)
  - Cataract [Recovering/Resolving]
  - Appendix cancer [Unknown]
  - Metastases to ovary [Unknown]
  - Blindness [Unknown]
